FAERS Safety Report 5965785-1 (Version None)
Quarter: 2008Q4

REPORT INFORMATION
  Report Type: 
  Country: None (occurrence: None)
  Receive Date: 20081125
  Receipt Date: 20081119
  Transmission Date: 20090506
  Serious: Yes (Other)
  Sender: FDA-Public Use
  Company Number: FR-MERCK-0811FRA00054

PATIENT
  Age: 61 Year
  Sex: Male

DRUGS (10)
  1. JANUVIA [Suspect]
     Indication: TYPE 2 DIABETES MELLITUS
     Route: 048
     Dates: start: 20080601
  2. CELIPROLOL HYDROCHLORIDE [Concomitant]
     Route: 048
  3. AMLODIPINE BESYLATE [Concomitant]
     Indication: HYPERTENSION
     Route: 048
  4. NITROGLYCERIN [Concomitant]
     Indication: CORONARY ARTERY DISEASE
     Route: 061
  5. HYDROCHLOROTHIAZIDE AND IRBESARTAN [Concomitant]
     Indication: HYPERTENSION
     Route: 048
  6. METFORMIN [Concomitant]
     Indication: TYPE 2 DIABETES MELLITUS
     Route: 048
  7. PRAZEPAM [Concomitant]
     Route: 048
  8. ASPIRIN LYSINE [Concomitant]
     Route: 048
  9. POTASSIUM CHLORIDE [Concomitant]
     Route: 048
  10. ZOCOR [Suspect]
     Indication: DYSLIPIDAEMIA
     Route: 048
     Dates: end: 20081101

REACTIONS (3)
  - ALANINE AMINOTRANSFERASE INCREASED [None]
  - ASPARTATE AMINOTRANSFERASE INCREASED [None]
  - GAMMA-GLUTAMYLTRANSFERASE INCREASED [None]
